FAERS Safety Report 5023627-5 (Version None)
Quarter: 2006Q2

REPORT INFORMATION
  Report Type: 
  Country: None (occurrence: None)
  Receive Date: 20060606
  Receipt Date: 20060522
  Transmission Date: 20061013
  Serious: Yes (Other)
  Sender: FDA-Public Use
  Company Number: SE-2006-011612

PATIENT
  Sex: Female

DRUGS (1)
  1. BETASERON [Suspect]
     Dates: start: 20010201

REACTIONS (4)
  - FURUNCLE [None]
  - PRURITUS [None]
  - RASH PAPULAR [None]
  - SCAB [None]
